FAERS Safety Report 8945550 (Version 3)
Quarter: 2013Q3

REPORT INFORMATION
  Report Type: Spontaneous
  Country: US (occurrence: US)
  Receive Date: 20121205
  Receipt Date: 20130812
  Transmission Date: 20140515
  Serious: Yes (Other)
  Sender: FDA-Public Use
  Company Number: US-PFIZER INC-2012303803

PATIENT
  Sex: Female

DRUGS (3)
  1. EFFEXOR XR [Suspect]
     Dosage: UNK
     Dates: end: 2013
  2. EFFEXOR XR [Suspect]
     Dosage: 150 MG, UNK
     Dates: start: 2013
  3. LYRICA [Suspect]
     Dosage: UNK

REACTIONS (4)
  - Multiple sclerosis [Unknown]
  - Pain [Unknown]
  - Menopausal disorder [Unknown]
  - Malaise [Unknown]
